FAERS Safety Report 12243407 (Version 1)
Quarter: 2016Q2

REPORT INFORMATION
  Report Type: Spontaneous
  Country: None (occurrence: CN)
  Receive Date: 20160406
  Receipt Date: 20160406
  Transmission Date: 20160815
  Serious: Yes (Other)
  Sender: FDA-Public Use
  Company Number: CN-MERCK KGAA-1050299

PATIENT

DRUGS (1)
  1. NOVOTHYROX [Suspect]
     Active Substance: LEVOTHYROXINE SODIUM

REACTIONS (6)
  - Tri-iodothyronine free increased [None]
  - Thyroiditis [None]
  - Papillary thyroid cancer [None]
  - Anti-thyroid antibody positive [None]
  - Thyroid disorder [None]
  - Thyroxine free increased [None]
